FAERS Safety Report 7222714-0 (Version None)
Quarter: 2011Q1

REPORT INFORMATION
  Report Type: 
  Country: None (occurrence: None)
  Receive Date: 20110104
  Receipt Date: 20101221
  Transmission Date: 20110831
  Serious: Yes (Hospitalization)
  Sender: FDA-Public Use
  Company Number: 2010-4425

PATIENT
  Age: 36 Year
  Sex: Male
  Weight: 118 kg

DRUGS (4)
  1. INSULIN (INSULIN) [Concomitant]
  2. METFORMIN HCL [Concomitant]
  3. SOMATULINE DEPOT [Suspect]
     Indication: ACROMEGALY
     Dosage: (45 MG ONCE EVERY 28 DAYS (45 MG, 1 IN 28 D), UNKNOWN) (90 MG ONCE EVERY 28 DAYS (90 MG, 1 IN 28 D),
     Dates: start: 20091231
  4. SOMATULINE DEPOT [Suspect]
     Indication: ACROMEGALY
     Dosage: (45 MG ONCE EVERY 28 DAYS (45 MG, 1 IN 28 D), UNKNOWN) (90 MG ONCE EVERY 28 DAYS (90 MG, 1 IN 28 D),
     Dates: end: 20101001

REACTIONS (2)
  - PANCREATITIS [None]
  - ILEUS PARALYTIC [None]
